FAERS Safety Report 13197601 (Version 4)
Quarter: 2017Q4

REPORT INFORMATION
  Report Type: Spontaneous
  Country: AU (occurrence: AU)
  Receive Date: 20170208
  Receipt Date: 20171210
  Transmission Date: 20180320
  Serious: Yes (Other)
  Sender: FDA-Public Use
  Company Number: AU-NOVOPROD-530218

PATIENT
  Age: 23 Year
  Sex: Female

DRUGS (1)
  1. SAXENDA [Suspect]
     Active Substance: LIRAGLUTIDE
     Indication: WEIGHT CONTROL
     Dosage: 100 MG, QD
     Route: 048
     Dates: start: 201602

REACTIONS (5)
  - Foetal growth abnormality [Unknown]
  - Incorrect route of drug administration [Unknown]
  - Exposure during pregnancy [Recovered/Resolved]
  - Product use issue [Recovered/Resolved]
  - Overdose [Unknown]

NARRATIVE: CASE EVENT DATE: 201602
